FAERS Safety Report 16124163 (Version 1)
Quarter: 2019Q2

REPORT INFORMATION
  Report Type: Spontaneous
  Country: US (occurrence: US)
  Receive Date: 20190327
  Receipt Date: 20190327
  Transmission Date: 20190711
  Serious: No
  Sender: FDA-Public Use
  Company Number: US-TEVA-2019-US-1018906

PATIENT
  Age: 12 Year
  Sex: Female

DRUGS (1)
  1. GUANFACINE HCL TABLETS [Suspect]
     Active Substance: GUANFACINE HYDROCHLORIDE
     Indication: HYPERTENSION
     Dosage: SINCE THREE MONTHS
     Route: 065
     Dates: start: 201812

REACTIONS (4)
  - Impulsive behaviour [Unknown]
  - Irritability [Unknown]
  - Insomnia [Unknown]
  - Mood swings [Unknown]

NARRATIVE: CASE EVENT DATE: 201812
